FAERS Safety Report 25137580 (Version 2)
Quarter: 2025Q2

REPORT INFORMATION
  Report Type: Spontaneous
  Country: FR (occurrence: FR)
  Receive Date: 20250329
  Receipt Date: 20250420
  Transmission Date: 20250717
  Serious: Yes (Hospitalization, Other)
  Sender: AUROBINDO
  Company Number: FR-ASTRAZENECA-202502GLO026416FR

PATIENT
  Age: 57 Year
  Sex: Female

DRUGS (8)
  1. CANDESARTAN [Suspect]
     Active Substance: CANDESARTAN
     Indication: Product used for unknown indication
     Route: 065
  2. OLANZAPINE [Suspect]
     Active Substance: OLANZAPINE
     Indication: Antipsychotic therapy
     Route: 030
     Dates: start: 20220129
  3. OLANZAPINE [Suspect]
     Active Substance: OLANZAPINE
     Route: 030
     Dates: start: 20220101
  4. ATORVASTATIN [Concomitant]
     Active Substance: ATORVASTATIN
     Indication: Product used for unknown indication
     Route: 065
  5. AMLODIPINE [Concomitant]
     Active Substance: AMLODIPINE BESYLATE
     Indication: Product used for unknown indication
     Route: 065
  6. FUROSEMIDE [Concomitant]
     Active Substance: FUROSEMIDE
     Indication: Product used for unknown indication
     Route: 065
  7. CLOPIDOGREL [Concomitant]
     Active Substance: CLOPIDOGREL BISULFATE
     Indication: Product used for unknown indication
     Route: 065
  8. BISOPROLOL [Concomitant]
     Active Substance: BISOPROLOL
     Indication: Product used for unknown indication
     Route: 065

REACTIONS (6)
  - Sinus tachycardia [Recovered/Resolved]
  - Syncope [Recovered/Resolved]
  - Somnolence [Recovered/Resolved]
  - Malaise [Recovered/Resolved]
  - Confusional state [Recovered/Resolved]
  - Dysarthria [Unknown]

NARRATIVE: CASE EVENT DATE: 20250129
